FAERS Safety Report 8183173-7 (Version None)
Quarter: 2012Q1

REPORT INFORMATION
  Report Type: 
  Country: None (occurrence: None)
  Receive Date: 20120201
  Receipt Date: 20101222
  Transmission Date: 20120608
  Serious: No
  Sender: FDA-Public Use
  Company Number: 261157USA

PATIENT
  Age: 71 Year
  Sex: Female

DRUGS (1)
  1. PROPOXYPHENE NAPSYLATE AND ACETAMINOPHEN [Suspect]

REACTIONS (8)
  - HEADACHE [None]
  - URINARY INCONTINENCE [None]
  - NAUSEA [None]
  - FEELING ABNORMAL [None]
  - FAECAL INCONTINENCE [None]
  - DIZZINESS [None]
  - DIARRHOEA [None]
  - ABDOMINAL DISCOMFORT [None]
